FAERS Safety Report 11434471 (Version 1)
Quarter: 2015Q3

REPORT INFORMATION
  Report Type: Spontaneous
  Country: US (occurrence: None)
  Receive Date: 20150828
  Receipt Date: 20150828
  Transmission Date: 20151125
  Serious: No
  Sender: FDA-Public Use
  Company Number: None

PATIENT
  Age: 69 Year
  Sex: Male

DRUGS (1)
  1. HUMIRA [Suspect]
     Active Substance: ADALIMUMAB
     Indication: COLITIS ULCERATIVE
     Dosage: 40MG  EVERY 14 DAYS  SUBCUTANEOUS
     Route: 058

REACTIONS (3)
  - Device failure [None]
  - Needle issue [None]
  - Drug dose omission [None]

NARRATIVE: CASE EVENT DATE: 20150820
